FAERS Safety Report 5051862-9 (Version None)
Quarter: 2006Q3

REPORT INFORMATION
  Report Type: 
  Country: None (occurrence: None)
  Receive Date: 20060712
  Receipt Date: 20060712
  Transmission Date: 20061208
  Serious: Yes (Hospitalization)
  Sender: FDA-Public Use
  Company Number: None

PATIENT
  Age: 79 Year
  Sex: Male

DRUGS (8)
  1. FERRLECIT [Suspect]
     Indication: IRON DEFICIENCY ANAEMIA
     Dosage: 500MG IV INFUSION (1 INFUSION)
     Route: 042
     Dates: start: 20060209
  2. FELODIPINE [Concomitant]
  3. METOCLOPRAMIDE [Concomitant]
  4. SUCRALFATE [Concomitant]
  5. TERAZOSIN HCL [Concomitant]
  6. METOPROLOL TARTRATE [Concomitant]
  7. OMEPRAZOLE [Concomitant]
  8. FERROUS SULFATE TAB [Concomitant]

REACTIONS (4)
  - BRADYCARDIA [None]
  - CARDIO-RESPIRATORY ARREST [None]
  - HYPOTENSION [None]
  - SYNCOPE [None]
